FAERS Safety Report 5710567-9 (Version None)
Quarter: 2008Q2

REPORT INFORMATION
  Report Type: 
  Country: None (occurrence: None)
  Receive Date: 20080415
  Receipt Date: 20080403
  Transmission Date: 20081010
  Serious: Yes (Hospitalization)
  Sender: FDA-Public Use
  Company Number: 233243J08USA

PATIENT
  Age: 44 Year
  Sex: Male
  Weight: 75.2971 kg

DRUGS (4)
  1. REBIF [Suspect]
     Indication: MULTIPLE SCLEROSIS
     Dosage: SUBCUTANEOUS
     Route: 058
     Dates: start: 20071029, end: 20080324
  2. LISINOPRIL [Concomitant]
  3. AMBIEN CR [Concomitant]
  4. WELLBUTRIN [Concomitant]

REACTIONS (1)
  - CHEST PAIN [None]
